FAERS Safety Report 4966057-4 (Version None)
Quarter: 2006Q2

REPORT INFORMATION
  Report Type: 
  Country: None (occurrence: None)
  Receive Date: 20060407
  Receipt Date: 20060331
  Transmission Date: 20061013
  Serious: Yes (Other)
  Sender: FDA-Public Use
  Company Number: PHNU2006DE01562

PATIENT
  Sex: Female

DRUGS (1)
  1. ESTRADOT [Suspect]
     Route: 062
     Dates: start: 20051001

REACTIONS (5)
  - ABDOMINAL PAIN [None]
  - EPIPLOIC APPENDAGITIS [None]
  - HAEMORRHAGE [None]
  - SURGERY [None]
  - VASCULAR OCCLUSION [None]
